FAERS Safety Report 9138194 (Version 2)
Quarter: 2013Q1

REPORT INFORMATION
  Report Type: Spontaneous
  Country: US (occurrence: US)
  Receive Date: 20130304
  Receipt Date: 20130327
  Transmission Date: 20140127
  Serious: Yes (Hospitalization)
  Sender: FDA-Public Use
  Company Number: US-B.I. PHARMACEUTICALS,INC./RIDGEFIELD-2013-BI-05343BP

PATIENT
  Age: 73 Year
  Sex: Male
  Weight: 77 kg

DRUGS (10)
  1. SPIRIVA [Suspect]
     Indication: CHRONIC OBSTRUCTIVE PULMONARY DISEASE
     Dosage: 18 MCG
     Route: 055
     Dates: start: 2011
  2. SPIRIVA [Suspect]
     Dosage: 18 MCG
     Route: 048
     Dates: start: 20130225, end: 20130225
  3. DILTIAZEM [Concomitant]
  4. LASIX [Concomitant]
  5. KLOR-CON [Concomitant]
  6. RIVAROXABAN [Concomitant]
  7. METOPROLOL [Concomitant]
  8. SIMVASTATIN [Concomitant]
  9. FAMOTIDINE [Concomitant]
  10. ASPIRIN [Concomitant]

REACTIONS (2)
  - Diverticulum intestinal haemorrhagic [Recovered/Resolved]
  - Incorrect route of drug administration [Recovered/Resolved]
